FAERS Safety Report 11493187 (Version 1)
Quarter: 2015Q3

REPORT INFORMATION
  Report Type: Spontaneous
  Country: US (occurrence: None)
  Receive Date: 20150910
  Receipt Date: 20150910
  Transmission Date: 20151125
  Serious: Yes (Other)
  Sender: FDA-Public Use
  Company Number: None

PATIENT
  Age: 73 Year
  Sex: Male
  Weight: 95 kg

DRUGS (1)
  1. AMITIZA [Suspect]
     Active Substance: LUBIPROSTONE
     Indication: CONSTIPATION
     Route: 048
     Dates: start: 20150902

REACTIONS (6)
  - Dysstasia [None]
  - Malaise [None]
  - Tremor [None]
  - Dizziness [None]
  - Headache [None]
  - Decreased activity [None]

NARRATIVE: CASE EVENT DATE: 20150902
